FAERS Safety Report 8807579 (Version 1)
Quarter: 2012Q4

REPORT INFORMATION
  Report Type: 
  Country: US (occurrence: US)
  Receive Date: 20120925
  Receipt Date: 20120925
  Transmission Date: 20130627
  Serious: Yes (Death)
  Sender: FDA-Public Use
  Company Number: US-JNJFOC-20120909569

PATIENT
  Age: 32 Year
  Sex: Female

DRUGS (1)
  1. REOPRO [Suspect]
     Indication: SURGERY
     Dosage: 2 vials
     Route: 065
     Dates: start: 20120905

REACTIONS (1)
  - Cardiac arrest [Fatal]
